FAERS Safety Report 10221798 (Version 1)
Quarter: 2014Q2

REPORT INFORMATION
  Report Type: Spontaneous
  Country: GB (occurrence: GB)
  Receive Date: 20140606
  Receipt Date: 20140606
  Transmission Date: 20141212
  Serious: No
  Sender: FDA-Public Use
  Company Number: GB-BIOMARINAP-GB-2013-101388

PATIENT
  Age: 3 Year
  Sex: Female
  Weight: 16 kg

DRUGS (1)
  1. NAGLAZYME [Suspect]
     Indication: MUCOPOLYSACCHARIDOSIS IV
     Dosage: 15 MG, QW
     Route: 041

REACTIONS (1)
  - Erythema [Recovered/Resolved]
